FAERS Safety Report 15741932 (Version 3)
Quarter: 2019Q1

REPORT INFORMATION
  Report Type: Spontaneous
  Country: JP (occurrence: JP)
  Receive Date: 20181219
  Receipt Date: 20190208
  Transmission Date: 20190417
  Serious: Yes (Death, Hospitalization)
  Sender: FDA-Public Use
  Company Number: JP-CELGENEUS-JPN-20181206518

PATIENT
  Age: 77 Year
  Sex: Male

DRUGS (1)
  1. ISTODAX [Suspect]
     Active Substance: ROMIDEPSIN
     Indication: PERIPHERAL T-CELL LYMPHOMA UNSPECIFIED
     Dosage: UNKNOWN
     Route: 041
     Dates: start: 20181206, end: 201812

REACTIONS (4)
  - Peripheral T-cell lymphoma unspecified [Fatal]
  - Sepsis [Not Recovered/Not Resolved]
  - Disseminated intravascular coagulation [Not Recovered/Not Resolved]
  - Gastrointestinal haemorrhage [Not Recovered/Not Resolved]

NARRATIVE: CASE EVENT DATE: 201812
